FAERS Safety Report 17772084 (Version 1)
Quarter: 2020Q2

REPORT INFORMATION
  Report Type: Spontaneous
  Country: US (occurrence: US)
  Receive Date: 20200512
  Receipt Date: 20200512
  Transmission Date: 20200714
  Serious: Yes (Hospitalization, Other)
  Sender: FDA-Public Use
  Company Number: US-NOVOPROD-727107

PATIENT
  Age: 66 Year
  Sex: Female

DRUGS (1)
  1. VICTOZA [Suspect]
     Active Substance: LIRAGLUTIDE
     Indication: PRODUCT USED FOR UNKNOWN INDICATION
     Dosage: UNK
     Route: 058

REACTIONS (8)
  - Hospitalisation [Unknown]
  - Emergency care [Not Recovered/Not Resolved]
  - Weight decreased [Unknown]
  - Blood glucose increased [Unknown]
  - Vein disorder [Unknown]
  - Oesophageal pain [Unknown]
  - Pneumonia aspiration [Unknown]
  - Oesophageal disorder [Unknown]
